FAERS Safety Report 16503066 (Version 1)
Quarter: 2019Q3

REPORT INFORMATION
  Report Type: Spontaneous
  Country: GB (occurrence: GB)
  Receive Date: 20190701
  Receipt Date: 20190701
  Transmission Date: 20191004
  Serious: Yes (Hospitalization)
  Sender: FDA-Public Use
  Company Number: GB-ELI_LILLY_AND_COMPANY-GB201906012344

PATIENT
  Sex: Male

DRUGS (3)
  1. PANCRELIPASE. [Concomitant]
     Active Substance: PANCRELIPASE
     Indication: POLYGLANDULAR AUTOIMMUNE SYNDROME TYPE I
  2. FORSTEO 250UG/ML [Suspect]
     Active Substance: TERIPARATIDE
     Dosage: 0.35 UG/KG, DAILY
     Route: 058
  3. FORSTEO 250UG/ML [Suspect]
     Active Substance: TERIPARATIDE
     Indication: POLYGLANDULAR AUTOIMMUNE SYNDROME TYPE I
     Dosage: 1 UG/KG, DAILY
     Route: 058

REACTIONS (9)
  - Hypocalcaemia [Unknown]
  - Blood alkaline phosphatase increased [Recovered/Resolved]
  - Inappropriate schedule of product administration [Unknown]
  - Nephrocalcinosis [Unknown]
  - Product administered at inappropriate site [Unknown]
  - Urine calcium/creatinine ratio increased [Recovered/Resolved]
  - Off label use [Unknown]
  - Incorrect product administration duration [Unknown]
  - Wrong technique in product usage process [Unknown]
